FAERS Safety Report 19704270 (Version 1)
Quarter: 2021Q3

REPORT INFORMATION
  Report Type: Spontaneous
  Country: US (occurrence: US)
  Receive Date: 20210815
  Receipt Date: 20210815
  Transmission Date: 20211014
  Serious: No
  Sender: FDA-Public Use
  Company Number: None

PATIENT
  Age: 30 Year
  Sex: Female
  Weight: 63 kg

DRUGS (11)
  1. AYGESTIN [Concomitant]
     Active Substance: NORETHINDRONE ACETATE
  2. PROBIOTIC [Concomitant]
     Active Substance: PROBIOTICS NOS
  3. VITAMIN B COMPLEX [Concomitant]
     Active Substance: CYANOCOBALAMIN\DEXPANTHENOL\NIACINAMIDE\PYRIDOXINE HYDROCHLORIDE\RIBOFLAVIN 5^-PHOSPHATE SODIUM\THIAMINE HYDROCHLORIDE\VITAMIN B COMPLEX
  4. OMEPRAZOLE. [Concomitant]
     Active Substance: OMEPRAZOLE
  5. MULTIVITAMIN [Concomitant]
     Active Substance: VITAMINS
  6. ADVAIR HFA [Concomitant]
     Active Substance: FLUTICASONE PROPIONATE\SALMETEROL XINAFOATE
  7. TYLENOL [Concomitant]
     Active Substance: ACETAMINOPHEN
  8. INAPSINE [Suspect]
     Active Substance: DROPERIDOL
     Indication: ABDOMINAL PAIN
     Dates: start: 20210812, end: 20210812
  9. LEXAPRO [Concomitant]
     Active Substance: ESCITALOPRAM OXALATE
  10. INAPSINE [Suspect]
     Active Substance: DROPERIDOL
     Indication: NAUSEA
     Dates: start: 20210812, end: 20210812
  11. KLONOPIN [Concomitant]
     Active Substance: CLONAZEPAM

REACTIONS (5)
  - Cold sweat [None]
  - Fatigue [None]
  - Anxiety [None]
  - Hyperhidrosis [None]
  - Impaired quality of life [None]

NARRATIVE: CASE EVENT DATE: 20210812
